FAERS Safety Report 16624972 (Version 1)
Quarter: 2019Q3

REPORT INFORMATION
  Report Type: Spontaneous
  Country: GB (occurrence: GB)
  Receive Date: 20190724
  Receipt Date: 20190724
  Transmission Date: 20191004
  Serious: Yes (Other)
  Sender: FDA-Public Use
  Company Number: None

PATIENT
  Age: 18 Year
  Sex: Female
  Weight: 55 kg

DRUGS (2)
  1. DEEP HEAT HEAT SPRAY [ETHYL SALICYLATE\GLYCOL SALICYLATE\METHYL NICOTINATE\METHYL SALICYLATE] [Suspect]
     Active Substance: ETHYL SALICYLATE\GLYCOL SALICYLATE\METHYL NICOTINATE\METHYL SALICYLATE
     Indication: ARTHRALGIA
     Route: 061
  2. FOLIC ACID. [Concomitant]
     Active Substance: FOLIC ACID

REACTIONS (3)
  - Application site erythema [None]
  - Application site swelling [None]
  - Application site pain [None]

NARRATIVE: CASE EVENT DATE: 20190724
